FAERS Safety Report 7475122-1 (Version None)
Quarter: 2011Q2

REPORT INFORMATION
  Report Type: 
  Country: None (occurrence: None)
  Receive Date: 20110512
  Receipt Date: 20101126
  Transmission Date: 20111010
  Serious: Yes (Hospitalization)
  Sender: FDA-Public Use
  Company Number: NZ-BAYER-201043842GPV

PATIENT
  Age: 55 Year
  Sex: Male
  Weight: 63.1 kg

DRUGS (11)
  1. LAMIVUDINE [Concomitant]
     Indication: PRODUCT USED FOR UNKNOWN INDICATION
     Dosage: 100 MG (DAILY DOSE), , ORAL
     Route: 048
     Dates: start: 20101004
  2. FRUSEMIDE [Concomitant]
     Dosage: 20 MG, QD
  3. MAXOLON [Concomitant]
     Dosage: 10 MG, PRN
     Route: 048
  4. NEXAVAR [Suspect]
     Indication: HEPATIC NEOPLASM MALIGNANT
     Dosage: 150 MG, QD
     Route: 048
     Dates: start: 20101004, end: 20101025
  5. FRUSEMIDE [Concomitant]
     Dosage: 40 MG, QD
  6. NEXAVAR [Suspect]
     Indication: HEPATIC NEOPLASM MALIGNANT
     Dosage: 400 MG, UNK
     Route: 048
     Dates: start: 20101004, end: 20101025
  7. COTRIM [Concomitant]
     Dosage: 480 MG, BID
  8. ADEFOVIR DIPIVOXIL KIT [Concomitant]
     Indication: PRODUCT USED FOR UNKNOWN INDICATION
     Dosage: 10 MG (DAILY DOSE), QD, ORAL
     Route: 048
     Dates: start: 20101004
  9. COTRIM [Concomitant]
     Indication: PROPHYLAXIS
     Dosage: 480 MG (DAILY DOSE), , ORAL
     Route: 048
  10. SUCRALFATE [Concomitant]
     Dosage: 1 G, QID
  11. FORTISIP [Concomitant]
     Indication: PRODUCT USED FOR UNKNOWN INDICATION
     Dosage: 2 CANS
     Route: 048
     Dates: start: 20101004

REACTIONS (3)
  - OESOPHAGEAL VARICES HAEMORRHAGE [None]
  - GASTROINTESTINAL HAEMORRHAGE [None]
  - VARICES OESOPHAGEAL [None]
